FAERS Safety Report 6040348-0 (Version None)
Quarter: 2009Q1

REPORT INFORMATION
  Report Type: 
  Country: None (occurrence: None)
  Receive Date: 20090116
  Receipt Date: 20080222
  Transmission Date: 20090719
  Serious: No
  Sender: FDA-Public Use
  Company Number: US-BRISTOL-MYERS SQUIBB COMPANY-14088215

PATIENT
  Age: 40 Year
  Sex: Female

DRUGS (1)
  1. ABILIFY [Suspect]
     Dosage: ABILIFY 10 MG QD WAS TAKEN FOR 2 MONTHS THEN DISCONTINUED. ABILIFY 1 MG QD WAS RESTARTED.

REACTIONS (1)
  - EXTRAPYRAMIDAL DISORDER [None]
